FAERS Safety Report 5007219-X (Version None)
Quarter: 2006Q1

REPORT INFORMATION
  Report Type: 
  Country: None (occurrence: None)
  Receive Date: 20060320
  Receipt Date: 20050420
  Transmission Date: 20060701
  Serious: Yes (Hospitalization)
  Sender: FDA-Public Use
  Company Number: 2005-04-1759

PATIENT
  Age: 46 Year
  Sex: Male

DRUGS (9)
  1. PEG-INTRON [Suspect]
     Indication: HEPATITIS C
     Dosage: 210 MCG QWK SUBCUTANEOUS
     Route: 058
     Dates: start: 20040304
  2. REBETOL [Suspect]
     Indication: HEPATITIS C
     Dosage: 1000 MG QD ORAL
     Route: 048
     Dates: start: 20040304
  3. AVANDAMET (ROSIGLITAZONE MELEATE AND METFORMIN HYDROCHLORIDE) [Concomitant]
  4. LISINOPRIL [Concomitant]
  5. IBUPROFEN [Concomitant]
  6. AMITRIPTYLINE HCL [Concomitant]
  7. ASPIRIN [Concomitant]
  8. CALCIUM GLUCONATE [Concomitant]
  9. MAGNESIUM [Concomitant]

REACTIONS (2)
  - ANAEMIA [None]
  - HYPOTENSION [None]
